FAERS Safety Report 18777829 (Version 1)
Quarter: 2021Q1

REPORT INFORMATION
  Report Type: Spontaneous
  Country: US (occurrence: US)
  Receive Date: 20210122
  Receipt Date: 20210122
  Transmission Date: 20210419
  Serious: No
  Sender: FDA-Public Use
  Company Number: 2020SGN03359

PATIENT
  Age: 62 Year
  Sex: Female
  Weight: 72.34 kg

DRUGS (13)
  1. PROMETHAZINE HCL [Concomitant]
     Active Substance: PROMETHAZINE HYDROCHLORIDE
  2. TUKYSA [Suspect]
     Active Substance: TUCATINIB
     Indication: BREAST CANCER FEMALE
     Dosage: 300 MG, BID
     Route: 048
     Dates: start: 20200422, end: 20201022
  3. CYCLOBENZAPRINE HCL [Concomitant]
     Active Substance: CYCLOBENZAPRINE HYDROCHLORIDE
  4. CELEBREX [Concomitant]
     Active Substance: CELECOXIB
  5. EMLA [Concomitant]
     Active Substance: LIDOCAINE\PRILOCAINE
  6. MEDROL [Concomitant]
     Active Substance: METHYLPREDNISOLONE
  7. TESSALON [Concomitant]
     Active Substance: BENZONATATE
  8. XANAX [Concomitant]
     Active Substance: ALPRAZOLAM
  9. TAMOXIFEN CITRATE. [Concomitant]
     Active Substance: TAMOXIFEN CITRATE
  10. CALCIUM 500+D [Concomitant]
     Active Substance: CALCIUM\VITAMIN D
  11. DECADRON [Concomitant]
     Active Substance: DEXAMETHASONE
  12. CELEXA [Concomitant]
     Active Substance: CITALOPRAM HYDROBROMIDE
  13. PROAIR HFA [Concomitant]
     Active Substance: ALBUTEROL SULFATE

REACTIONS (9)
  - Headache [Unknown]
  - Pain in extremity [Unknown]
  - Vomiting [Unknown]
  - Peripheral swelling [Unknown]
  - Fatigue [Unknown]
  - Memory impairment [Unknown]
  - Pain [Unknown]
  - Hospice care [Unknown]
  - Nausea [Unknown]

NARRATIVE: CASE EVENT DATE: 20201022
